FAERS Safety Report 9118355 (Version 1)
Quarter: 2013Q1

REPORT INFORMATION
  Report Type: Spontaneous
  Country: US (occurrence: None)
  Receive Date: 20130221
  Receipt Date: 20130221
  Transmission Date: 20140127
  Serious: Yes (Hospitalization)
  Sender: FDA-Public Use
  Company Number: None

PATIENT
  Sex: Male
  Weight: 118 kg

DRUGS (2)
  1. METHOTREXATE [Suspect]
     Indication: RENAL FAILURE ACUTE
  2. RITUXIMAB (MOAB C2B8 ANTI CD20, CHIMERIC) [Suspect]

REACTIONS (1)
  - Renal failure acute [None]
